FAERS Safety Report 14180533 (Version 2)
Quarter: 2017Q4

REPORT INFORMATION
  Report Type: Report from Study
  Country: US (occurrence: HU)
  Receive Date: 20171110
  Receipt Date: 20171219
  Transmission Date: 20180321
  Serious: Yes (Hospitalization, Other)
  Sender: FDA-Public Use
  Company Number: US-SUNOVION-2017SUN004841

PATIENT

DRUGS (4)
  1. TOLPERISONE [Suspect]
     Active Substance: TOLPERISONE
     Indication: RHEUMATIC DISORDER
     Dosage: UNK
     Route: 065
  2. BERODUAL [Concomitant]
     Active Substance: FENOTEROL HYDROBROMIDE\IPRATROPIUM BROMIDE
     Dosage: UNKNOWN
  3. INDACATEROL AND GLYCOPYRROLATE [Suspect]
     Active Substance: GLYCOPYRROLATE\INDACATEROL MALEATE
     Indication: CHRONIC OBSTRUCTIVE PULMONARY DISEASE
     Dosage: 1 DF QD 43 UG GLYCOPYRRONIUM BROMIDE, 85 UG INDACATEROL), UNK
     Route: 055
     Dates: start: 20171024
  4. RETAFYLLIN [Concomitant]
     Active Substance: THEOPHYLLINE
     Dosage: UNKNOWN

REACTIONS (7)
  - Increased upper airway secretion [Not Recovered/Not Resolved]
  - Dyspnoea [Unknown]
  - Rheumatic disorder [Unknown]
  - Asphyxia [Not Recovered/Not Resolved]
  - Respiratory arrest [Unknown]
  - Dysphonia [Unknown]
  - Cough [Not Recovered/Not Resolved]

NARRATIVE: CASE EVENT DATE: 20171030
